FAERS Safety Report 14638849 (Version 1)
Quarter: 2018Q1

REPORT INFORMATION
  Report Type: Spontaneous
  Country: US (occurrence: US)
  Receive Date: 20180315
  Receipt Date: 20180315
  Transmission Date: 20180509
  Serious: Yes (Hospitalization)
  Sender: FDA-Public Use
  Company Number: US-ROCHE-2084509

PATIENT
  Age: 22 Year
  Sex: Male

DRUGS (1)
  1. TAMIFLU [Suspect]
     Active Substance: OSELTAMIVIR PHOSPHATE
     Indication: INFLUENZA
     Dosage: TWICE DAILY FOR FIVE DAYS
     Route: 065
     Dates: start: 2015

REACTIONS (5)
  - Mood swings [Recovered/Resolved]
  - Suicidal ideation [Recovered/Resolved]
  - Memory impairment [Recovered/Resolved]
  - Insomnia [Recovered/Resolved]
  - Hallucination, auditory [Recovered/Resolved]
